FAERS Safety Report 15179512 (Version 2)
Quarter: 2018Q3

REPORT INFORMATION
  Report Type: Spontaneous
  Country: JP (occurrence: JP)
  Receive Date: 20180723
  Receipt Date: 20180810
  Transmission Date: 20181010
  Serious: Yes (Hospitalization, Other)
  Sender: FDA-Public Use
  Company Number: JP-ASTELLAS-2018JP009698AA

PATIENT
  Age: 61 Year
  Sex: Female
  Weight: 51 kg

DRUGS (14)
  1. VAGOSTIGMIN                        /00045902/ [Concomitant]
     Route: 048
     Dates: start: 20170712, end: 20170825
  2. PREDONINE [Concomitant]
     Active Substance: PREDNISOLONE
     Indication: MYASTHENIA GRAVIS
     Dosage: 5 TO 60 MG, ONCE DAILY
     Route: 048
     Dates: start: 20170207, end: 20170409
  3. MOSAPRIDE CITRATE [Concomitant]
     Active Substance: MOSAPRIDE CITRATE
     Indication: GASTRIC CANCER
     Route: 048
     Dates: start: 201706, end: 20170920
  4. VAGOSTIGMIN                        /00045902/ [Concomitant]
     Route: 048
     Dates: start: 20170916, end: 20170920
  5. NEXIUM [Concomitant]
     Active Substance: ESOMEPRAZOLE MAGNESIUM
     Indication: PROPHYLAXIS AGAINST GASTROINTESTINAL ULCER
     Route: 048
     Dates: start: 20170207, end: 20170920
  6. BENET [Concomitant]
     Active Substance: RISEDRONATE SODIUM
     Indication: OSTEOPOROSIS
     Route: 048
     Dates: start: 20170517, end: 20170920
  7. BIOFERMIN                          /07958301/ [Concomitant]
     Indication: GASTRIC CANCER
     Route: 048
     Dates: start: 201706, end: 20170920
  8. VAGOSTIGMIN                        /00045902/ [Concomitant]
     Route: 048
     Dates: start: 20170826, end: 20170915
  9. PROGRAF [Suspect]
     Active Substance: TACROLIMUS\TACROLIMUS ANHYDROUS
     Indication: MYASTHENIA GRAVIS
     Route: 048
     Dates: start: 20170214, end: 20170920
  10. VAGOSTIGMIN                        /00045902/ [Concomitant]
     Indication: MYASTHENIA GRAVIS
     Route: 048
     Dates: start: 20170309, end: 20170310
  11. VAGOSTIGMIN                        /00045902/ [Concomitant]
     Route: 048
     Dates: start: 20170311, end: 20170322
  12. VAGOSTIGMIN                        /00045902/ [Concomitant]
     Route: 048
     Dates: start: 20170323, end: 20170711
  13. RISEDRONATE SODIUM. [Concomitant]
     Active Substance: RISEDRONATE SODIUM
     Indication: OSTEOPOROSIS
     Route: 048
     Dates: start: 20170228, end: 20170516
  14. EXCELASE [Concomitant]
     Active Substance: PANCRELIPASE
     Indication: GASTRIC CANCER
     Route: 048
     Dates: start: 201706, end: 20170920

REACTIONS (1)
  - Intestinal obstruction [Recovering/Resolving]

NARRATIVE: CASE EVENT DATE: 20170920
